FAERS Safety Report 23675885 (Version 1)
Quarter: 2024Q1

REPORT INFORMATION
  Report Type: Spontaneous
  Country: US (occurrence: US)
  Receive Date: 20240327
  Receipt Date: 20240327
  Transmission Date: 20240410
  Serious: Yes (Other)
  Sender: FDA-Public Use
  Company Number: US-BRISTOL-MYERS SQUIBB COMPANY-2024-046682

PATIENT
  Age: 68 Year
  Sex: Male

DRUGS (19)
  1. POMALYST [Suspect]
     Active Substance: POMALIDOMIDE
     Indication: Plasma cell myeloma
     Route: 048
     Dates: start: 20200128
  2. OXYCODONE [Concomitant]
     Active Substance: OXYCODONE\OXYCODONE HYDROCHLORIDE
     Dosage: IMMEDIATE RELEASE
  3. VITAMIN B12 [Concomitant]
     Active Substance: CYANOCOBALAMIN
  4. ROSUVASTATIN [Concomitant]
     Active Substance: ROSUVASTATIN
  5. COLACE [Concomitant]
     Active Substance: DOCUSATE SODIUM
  6. DULOXETINE [Concomitant]
     Active Substance: DULOXETINE
  7. FUROSEMIDE [Concomitant]
     Active Substance: FUROSEMIDE
  8. MAPAP [Concomitant]
     Active Substance: ACETAMINOPHEN
  9. ALPHA LIPOIC ACID [Concomitant]
     Active Substance: .ALPHA.-LIPOIC ACID
  10. POTASSIUM CHLORIDE [Concomitant]
     Active Substance: POTASSIUM CHLORIDE
  11. ASPIRIN [Concomitant]
     Active Substance: ASPIRIN
     Dosage: LOW DOSE
  12. COENZYME Q10 [Concomitant]
     Active Substance: DIETARY SUPPLEMENT\UBIDECARENONE
  13. FOLIC ACID [Concomitant]
     Active Substance: FOLIC ACID
  14. VITAMIN C [Concomitant]
     Active Substance: ASCORBIC ACID
  15. ACYCLOVIR [Concomitant]
     Active Substance: ACYCLOVIR
  16. LYRICA [Concomitant]
     Active Substance: PREGABALIN
  17. ELIQUIS [Concomitant]
     Active Substance: APIXABAN
  18. NOVOLOG [Concomitant]
     Active Substance: INSULIN ASPART
     Dosage: ORANGE
  19. TOUJEO [Concomitant]
     Active Substance: INSULIN GLARGINE
     Dosage: 300U/ML PEN 1.5ML

REACTIONS (1)
  - Plasma cell myeloma [Unknown]

NARRATIVE: CASE EVENT DATE: 20240301
